FAERS Safety Report 5300397-4 (Version None)
Quarter: 2007Q2

REPORT INFORMATION
  Report Type: 
  Country: None (occurrence: None)
  Receive Date: 20070413
  Receipt Date: 20070413
  Transmission Date: 20071010
  Serious: Yes (Other)
  Sender: FDA-Public Use
  Company Number: None

PATIENT
  Age: 11 Year
  Sex: Female
  Weight: 55.7924 kg

DRUGS (12)
  1. ZOLOFT [Suspect]
     Indication: ANXIETY
     Dosage: 25MG PO QD
     Route: 048
     Dates: start: 20061204
  2. ZOLOFT [Suspect]
     Indication: ENURESIS
     Dosage: 25MG PO QD
     Route: 048
     Dates: start: 20061204
  3. ZOLOFT [Suspect]
     Indication: MAJOR DEPRESSION
     Dosage: 25MG PO QD
     Route: 048
     Dates: start: 20061204
  4. ZOLOFT [Suspect]
     Indication: PHOBIA
     Dosage: 25MG PO QD
     Route: 048
     Dates: start: 20061204
  5. ZOLOFT [Suspect]
     Indication: ANXIETY
     Dosage: 25MG PO QD
     Route: 048
     Dates: start: 20070201
  6. ZOLOFT [Suspect]
     Indication: ENURESIS
     Dosage: 25MG PO QD
     Route: 048
     Dates: start: 20070201
  7. ZOLOFT [Suspect]
     Indication: MAJOR DEPRESSION
     Dosage: 25MG PO QD
     Route: 048
     Dates: start: 20070201
  8. ZOLOFT [Suspect]
     Indication: PHOBIA
     Dosage: 25MG PO QD
     Route: 048
     Dates: start: 20070201
  9. ZOLOFT [Suspect]
     Indication: ANXIETY
     Dosage: 25MG PO QD
     Route: 048
     Dates: start: 20070402
  10. ZOLOFT [Suspect]
     Indication: ENURESIS
     Dosage: 25MG PO QD
     Route: 048
     Dates: start: 20070402
  11. ZOLOFT [Suspect]
     Indication: MAJOR DEPRESSION
     Dosage: 25MG PO QD
     Route: 048
     Dates: start: 20070402
  12. ZOLOFT [Suspect]
     Indication: PHOBIA
     Dosage: 25MG PO QD
     Route: 048
     Dates: start: 20070402

REACTIONS (2)
  - PHARMACEUTICAL PRODUCT COMPLAINT [None]
  - URINARY INCONTINENCE [None]
